FAERS Safety Report 23084426 (Version 2)
Quarter: 2023Q4

REPORT INFORMATION
  Report Type: Spontaneous
  Country: US (occurrence: US)
  Receive Date: 20231019
  Receipt Date: 20231025
  Transmission Date: 20240110
  Serious: Yes (Other)
  Sender: FDA-Public Use
  Company Number: US-PFIZER INC-PV202300171550

PATIENT
  Sex: Female

DRUGS (1)
  1. IBRANCE [Suspect]
     Active Substance: PALBOCICLIB
     Dosage: UNK, CYCLIC

REACTIONS (5)
  - Pancreatitis [Unknown]
  - Gallbladder disorder [Unknown]
  - Lung disorder [Unknown]
  - Neoplasm progression [Unknown]
  - COVID-19 [Unknown]
